FAERS Safety Report 15964672 (Version 2)
Quarter: 2019Q1

REPORT INFORMATION
  Report Type: Report from Study
  Country: BE (occurrence: BE)
  Receive Date: 20190215
  Receipt Date: 20190220
  Transmission Date: 20190418
  Serious: Yes (Other)
  Sender: FDA-Public Use
  Company Number: BE-ROCHE-2264323

PATIENT
  Age: 54 Year
  Sex: Male
  Weight: 73 kg

DRUGS (1)
  1. VALCYTE [Suspect]
     Active Substance: VALGANCICLOVIR HYDROCHLORIDE
     Indication: CYTOMEGALOVIRUS INFECTION
     Route: 065
     Dates: start: 20181024, end: 20181125

REACTIONS (4)
  - Off label use [Unknown]
  - Cytomegalovirus infection [Not Recovered/Not Resolved]
  - Intentional product use issue [Unknown]
  - Transplant rejection [Unknown]

NARRATIVE: CASE EVENT DATE: 20181024
